FAERS Safety Report 9423319 (Version 1)
Quarter: 2013Q3

REPORT INFORMATION
  Report Type: Report from Study
  Country: US (occurrence: US)
  Receive Date: 20130726
  Receipt Date: 20130726
  Transmission Date: 20140515
  Serious: Yes (Hospitalization)
  Sender: FDA-Public Use
  Company Number: US-ABBOTT-13P-163-1092222-00

PATIENT
  Age: 47 Year
  Sex: Female
  Weight: 69.92 kg

DRUGS (10)
  1. HUMIRA [Suspect]
     Indication: CROHN^S DISEASE
     Dates: start: 201205, end: 201205
  2. HUMIRA [Suspect]
     Dates: start: 201205, end: 201205
  3. HUMIRA [Suspect]
     Dates: start: 201205, end: 201207
  4. HUMIRA [Suspect]
     Dates: start: 201207, end: 201305
  5. DEXILANT [Concomitant]
     Indication: PRODUCT USED FOR UNKNOWN INDICATION
  6. MERCAPTOPURINE [Concomitant]
     Indication: PRODUCT USED FOR UNKNOWN INDICATION
  7. SUMATRIPTAN [Concomitant]
     Indication: PRODUCT USED FOR UNKNOWN INDICATION
  8. TYLENOL [Concomitant]
     Indication: PRODUCT USED FOR UNKNOWN INDICATION
  9. MERCAPTOPURINE [Concomitant]
     Indication: PRODUCT USED FOR UNKNOWN INDICATION
     Dates: start: 201305
  10. MERCAPTOPURINE [Concomitant]
     Dates: start: 201306

REACTIONS (7)
  - Gastrooesophageal reflux disease [Not Recovered/Not Resolved]
  - Headache [Recovered/Resolved]
  - Nephrolithiasis [Recovered/Resolved]
  - Drug ineffective [Not Recovered/Not Resolved]
  - Migraine [Recovered/Resolved]
  - Small intestinal obstruction [Recovered/Resolved]
  - Abdominal distension [Recovered/Resolved]
